FAERS Safety Report 23655764 (Version 4)
Quarter: 2024Q3

REPORT INFORMATION
  Report Type: Spontaneous
  Country: JP (occurrence: JP)
  Receive Date: 20240321
  Receipt Date: 20240826
  Transmission Date: 20241016
  Serious: Yes (Other)
  Sender: CSL BEHRING
  Company Number: JP-BEH-2024169926

PATIENT
  Age: 9 Year
  Sex: Male
  Weight: 40.3 kg

DRUGS (6)
  1. PRIVIGEN [Suspect]
     Active Substance: HUMAN IMMUNOGLOBULIN G
     Indication: Immunoglobulin therapy
     Dosage: 15 G, SINGLE
     Route: 042
     Dates: start: 20240312, end: 20240314
  2. PRIVIGEN [Suspect]
     Active Substance: HUMAN IMMUNOGLOBULIN G
     Indication: Chronic inflammatory demyelinating polyradiculoneuropathy
  3. ELTROMBOPAG OLAMINE [Concomitant]
     Active Substance: ELTROMBOPAG OLAMINE
     Indication: Immune thrombocytopenia
     Dosage: 12.5 MG, QD (2 HOURS AFTER DINNER EVERY DAY)
     Route: 048
     Dates: start: 20240129
  4. PREDNISOLONE [Concomitant]
     Active Substance: PREDNISOLONE
     Indication: Immune thrombocytopenia
     Dosage: 3 MG, QD (AFTER BREAKFAST EVERY DAY)
     Route: 048
     Dates: start: 20230610
  5. ALLEGRA [Concomitant]
     Active Substance: FEXOFENADINE HYDROCHLORIDE
     Indication: Seasonal allergy
     Dosage: 30 MG, BID (AFTER BREAKFAST AND BEFORE SLEEP)
     Route: 048
     Dates: start: 20240219, end: 20240411
  6. DIETARY SUPPLEMENT\PROBIOTICS [Concomitant]
     Active Substance: DIETARY SUPPLEMENT\PROBIOTICS NOS
     Indication: Diarrhoea
     Dosage: 2 TABLET, QD
     Route: 048
     Dates: start: 20240311, end: 20240317

REACTIONS (6)
  - Meningitis aseptic [Recovered/Resolved]
  - CSF cell count increased [Recovered/Resolved]
  - Headache [Recovered/Resolved]
  - Systemic lupus erythematosus [Unknown]
  - Erythema [Unknown]
  - Antinuclear antibody positive [Unknown]

NARRATIVE: CASE EVENT DATE: 20240314
